FAERS Safety Report 5610004-9 (Version None)
Quarter: 2008Q1

REPORT INFORMATION
  Report Type: 
  Country: None (occurrence: None)
  Receive Date: 20080131
  Receipt Date: 20080123
  Transmission Date: 20080703
  Serious: Yes (Hospitalization)
  Sender: FDA-Public Use
  Company Number: US-BAXTER-2008BH000092

PATIENT
  Age: 77 Year
  Sex: Male
  Weight: 70 kg

DRUGS (13)
  1. HEPARIN SODIUM [Suspect]
     Indication: ANTICOAGULANT THERAPY
     Route: 042
     Dates: start: 20071201, end: 20071201
  2. HEPARIN SODIUM [Suspect]
     Route: 065
  3. FOSRENOL [Concomitant]
     Indication: BLOOD PHOSPHORUS ABNORMAL
     Route: 048
  4. SIMVASTATIN [Concomitant]
     Indication: BLOOD CHOLESTEROL
     Route: 048
  5. METOPROLOL TARTRATE [Concomitant]
     Indication: CARDIAC DISORDER
     Route: 048
  6. NORVASC [Concomitant]
     Indication: BLOOD PRESSURE MANAGEMENT
     Route: 048
  7. CALCIUM +D [Concomitant]
     Indication: MINERAL SUPPLEMENTATION
     Route: 048
  8. PAXIL CR [Concomitant]
     Indication: ANTIDEPRESSANT THERAPY
     Route: 048
  9. ACTONEL [Concomitant]
     Indication: DRUG USE FOR UNKNOWN INDICATION
     Route: 048
  10. EPOGEN [Concomitant]
     Indication: ANAEMIA
     Route: 048
  11. ZEMPLAR [Concomitant]
     Indication: HYPERPARATHYROIDISM
     Route: 048
  12. VENOFER [Concomitant]
     Indication: ANAEMIA
     Route: 048
  13. PHOSLO [Concomitant]
     Indication: HYPERPHOSPHATAEMIA
     Route: 048

REACTIONS (7)
  - CHEST DISCOMFORT [None]
  - CHEST PAIN [None]
  - DYSPNOEA [None]
  - FLUSHING [None]
  - HYPERHIDROSIS [None]
  - NAUSEA [None]
  - THIRST [None]
